FAERS Safety Report 9951698 (Version 1)
Quarter: 2014Q1

REPORT INFORMATION
  Report Type: Spontaneous
  Country: US (occurrence: US)
  Receive Date: 20140304
  Receipt Date: 20140304
  Transmission Date: 20141002
  Serious: No
  Sender: FDA-Public Use
  Company Number: US-ABBVIE-13P-163-1073438-00

PATIENT
  Age: 52 Year
  Sex: Female
  Weight: 78.09 kg

DRUGS (8)
  1. HUMIRA [Suspect]
     Indication: RHEUMATOID ARTHRITIS
     Dates: start: 201212, end: 201212
  2. HUMIRA [Suspect]
     Dates: start: 201303
  3. PREDNISONE [Concomitant]
     Indication: RHEUMATOID ARTHRITIS
  4. FOLIC ACID [Concomitant]
     Indication: VITAMIN SUPPLEMENTATION
  5. TRAMADOL [Concomitant]
     Indication: RHEUMATOID ARTHRITIS
  6. LORTAB [Concomitant]
     Indication: RHEUMATOID ARTHRITIS
  7. BONIVA [Concomitant]
     Indication: BONE DISORDER
  8. METHOTREXATE [Concomitant]
     Indication: RHEUMATOID ARTHRITIS

REACTIONS (4)
  - Increased upper airway secretion [Recovered/Resolved]
  - Influenza [Recovered/Resolved]
  - Bronchitis [Recovered/Resolved]
  - Rheumatoid arthritis [Not Recovered/Not Resolved]
